FAERS Safety Report 23050411 (Version 1)
Quarter: 2023Q4

REPORT INFORMATION
  Report Type: Spontaneous
  Country: US (occurrence: US)
  Receive Date: 20231010
  Receipt Date: 20231010
  Transmission Date: 20240110
  Serious: Yes (Other)
  Sender: FDA-Public Use
  Company Number: US-Sprout Pharmaceuticals, Inc.-2023SP000299

PATIENT
  Age: 54 Year
  Sex: Female

DRUGS (1)
  1. ADDYI [Suspect]
     Active Substance: FLIBANSERIN
     Indication: Product used for unknown indication
     Dosage: RX # 561651
     Route: 048
     Dates: start: 20230910

REACTIONS (8)
  - Dyspnoea at rest [Unknown]
  - Dizziness [Unknown]
  - Throat tightness [Unknown]
  - Palpitations [Unknown]
  - Head discomfort [Unknown]
  - Cold sweat [Unknown]
  - Feeling abnormal [Unknown]
  - Heart rate irregular [Unknown]

NARRATIVE: CASE EVENT DATE: 20230910
